FAERS Safety Report 6551667-3 (Version None)
Quarter: 2010Q1

REPORT INFORMATION
  Report Type: 
  Country: None (occurrence: None)
  Receive Date: 20100126
  Receipt Date: 20100115
  Transmission Date: 20100710
  Serious: Yes (Other)
  Sender: FDA-Public Use
  Company Number: SE-JNJFOC-20070102020

PATIENT
  Sex: Male

DRUGS (8)
  1. REMICADE [Suspect]
     Indication: RHEUMATOID ARTHRITIS
     Route: 042
  2. LASIX [Concomitant]
     Route: 048
  3. LANSOPRAZOLE [Concomitant]
  4. SALAZOPYRIN [Concomitant]
     Route: 048
  5. KALCIPOS-D [Concomitant]
  6. METHOTREXATE [Concomitant]
     Route: 048
  7. FOLACIN [Concomitant]
     Route: 048
  8. NAPROSYN [Concomitant]

REACTIONS (2)
  - BRONCHITIS [None]
  - PERICARDITIS [None]
